FAERS Safety Report 18026367 (Version 2)
Quarter: 2020Q3

REPORT INFORMATION
  Report Type: Report from Study
  Country: None (occurrence: DE)
  Receive Date: 20200716
  Receipt Date: 20200801
  Transmission Date: 20201103
  Serious: Yes (Death, Hospitalization)
  Sender: FDA-Public Use
  Company Number: DE-ABBVIE-20K-062-3482270-00

PATIENT
  Age: 80 Year
  Sex: Male

DRUGS (3)
  1. HUMIRA [Suspect]
     Active Substance: ADALIMUMAB
     Indication: RHEUMATOID ARTHRITIS
     Route: 058
     Dates: start: 201605, end: 201811
  2. MTX [Concomitant]
     Active Substance: METHOTREXATE SODIUM
     Indication: PRODUCT USED FOR UNKNOWN INDICATION
     Dosage: BEFORE 02?MAY?2016
     Dates: end: 201911
  3. HUMIRA [Suspect]
     Active Substance: ADALIMUMAB
     Route: 058
     Dates: start: 20190702, end: 20191124

REACTIONS (6)
  - Multiple organ dysfunction syndrome [Fatal]
  - Cardiovascular insufficiency [Fatal]
  - Neoplasm [Fatal]
  - Oedema peripheral [Unknown]
  - Squamous cell carcinoma of lung [Fatal]
  - Dyspnoea [Unknown]

NARRATIVE: CASE EVENT DATE: 201909
